FAERS Safety Report 18448162 (Version 1)
Quarter: 2020Q4

REPORT INFORMATION
  Report Type: Spontaneous
  Country: CN (occurrence: CN)
  Receive Date: 20201030
  Receipt Date: 20201030
  Transmission Date: 20210114
  Serious: Yes (Disabling)
  Sender: FDA-Public Use
  Company Number: CN-ASTRAZENECA-2020SF39902

PATIENT
  Age: 28847 Day
  Sex: Male
  Weight: 54 kg

DRUGS (6)
  1. SODIUM CHLORIDE. [Concomitant]
     Active Substance: SODIUM CHLORIDE
     Indication: MENSTRUAL DISORDER
     Route: 041
     Dates: start: 20200910, end: 20200912
  2. ETOPOSIDE. [Suspect]
     Active Substance: ETOPOSIDE
     Indication: LUNG NEOPLASM MALIGNANT
     Route: 041
     Dates: start: 20200910, end: 20200912
  3. IMFINZI [Suspect]
     Active Substance: DURVALUMAB
     Indication: LUNG NEOPLASM MALIGNANT
     Route: 041
     Dates: start: 20200910, end: 20200910
  4. SODIUM CHLORIDE. [Concomitant]
     Active Substance: SODIUM CHLORIDE
     Indication: MENSTRUAL DISORDER
     Route: 041
     Dates: start: 20200910, end: 20200910
  5. NUO XIN [Suspect]
     Active Substance: CISPLATIN
     Indication: LUNG NEOPLASM MALIGNANT
     Route: 041
     Dates: start: 20200910, end: 20200912
  6. SODIUM CHLORIDE. [Concomitant]
     Active Substance: SODIUM CHLORIDE
     Indication: MENSTRUAL DISORDER
     Route: 041
     Dates: start: 20200910, end: 20200912

REACTIONS (2)
  - Drug-induced liver injury [Recovering/Resolving]
  - Adrenal insufficiency [Recovering/Resolving]

NARRATIVE: CASE EVENT DATE: 20201001
